FAERS Safety Report 25361814 (Version 1)
Quarter: 2025Q2

REPORT INFORMATION
  Report Type: Spontaneous
  Country: US (occurrence: US)
  Receive Date: 20250527
  Receipt Date: 20250527
  Transmission Date: 20250717
  Serious: No
  Sender: ALCON
  Company Number: US-ALCON LABORATORIES-ALC2024US003491

PATIENT
  Age: 84 Year
  Sex: Female

DRUGS (2)
  1. METHAZOLAMIDE [Suspect]
     Active Substance: METHAZOLAMIDE
     Indication: Product used for unknown indication
     Route: 047
  2. SIMBRINZA [Suspect]
     Active Substance: BRIMONIDINE TARTRATE\BRINZOLAMIDE
     Indication: Product used for unknown indication
     Route: 047

REACTIONS (1)
  - Dizziness [Recovered/Resolved]
